FAERS Safety Report 6711377-6 (Version None)
Quarter: 2010Q2

REPORT INFORMATION
  Report Type: 
  Country: None (occurrence: None)
  Receive Date: 20100504
  Receipt Date: 20100504
  Transmission Date: 20101027
  Serious: Yes (Life-Threatening, Hospitalization)
  Sender: FDA-Public Use
  Company Number: None

PATIENT
  Age: 49 Year
  Sex: Female
  Weight: 60 kg

DRUGS (1)
  1. ESKALITH [Suspect]
     Indication: BIPOLAR I DISORDER
     Dosage: 300MG 3X A DAY
     Dates: start: 19791101, end: 20060825

REACTIONS (2)
  - DIALYSIS [None]
  - RENAL FAILURE [None]
